FAERS Safety Report 15775321 (Version 1)
Quarter: 2018Q4

REPORT INFORMATION
  Report Type: Spontaneous
  Country: GB (occurrence: GB)
  Receive Date: 20181231
  Receipt Date: 20181231
  Transmission Date: 20190205
  Serious: Yes (Life-Threatening, Hospitalization, Other)
  Sender: FDA-Public Use
  Company Number: GB-SUN PHARMACEUTICAL INDUSTRIES LTD-2018RR-194884

PATIENT
  Age: 61 Year
  Sex: Male
  Weight: 95 kg

DRUGS (6)
  1. LANSOPRAZOLE. [Concomitant]
     Active Substance: LANSOPRAZOLE
     Indication: PRODUCT USED FOR UNKNOWN INDICATION
     Dosage: ()
     Route: 065
  2. FINASTERIDE. [Concomitant]
     Active Substance: FINASTERIDE
     Indication: PRODUCT USED FOR UNKNOWN INDICATION
     Dosage: ()
     Route: 065
  3. CIPROFLOXACIN. [Suspect]
     Active Substance: CIPROFLOXACIN
     Indication: ORCHITIS
     Dosage: ()AS NECESSARY
     Route: 048
     Dates: start: 20170427
  4. MACROBID [Suspect]
     Active Substance: NITROFURANTOIN\NITROFURANTOIN MONOHYDRATE
     Indication: PROPHYLAXIS
     Dosage: ONGOING AS 1 PER DAY AS A PROPHYLACTIC AND 4 PER DAY WHEN A URINARY TRACT INFECTION.
     Route: 048
     Dates: start: 20150804
  5. TAMSULOSIN [Concomitant]
     Active Substance: TAMSULOSIN
     Indication: PRODUCT USED FOR UNKNOWN INDICATION
     Dosage: ()
     Route: 065
  6. CO-AMOXICLAV [Concomitant]
     Active Substance: AMOXICILLIN\CLAVULANATE POTASSIUM
     Indication: PRODUCT USED FOR UNKNOWN INDICATION
     Dosage: ()
     Route: 065

REACTIONS (20)
  - Muscle spasms [Unknown]
  - Pain in extremity [Unknown]
  - Jaundice [Unknown]
  - Condition aggravated [Unknown]
  - Cold sweat [Unknown]
  - Neurological symptom [Unknown]
  - Nerve compression [Unknown]
  - Balance disorder [Unknown]
  - Back pain [Unknown]
  - Asthenia [Unknown]
  - Gastrointestinal motility disorder [Unknown]
  - Arthralgia [Unknown]
  - Urinary incontinence [Unknown]
  - Muscular weakness [Unknown]
  - Renal impairment [Unknown]
  - Fall [Unknown]
  - Gait disturbance [Unknown]
  - Urinary retention [Recovered/Resolved with Sequelae]
  - Cauda equina syndrome [Recovered/Resolved with Sequelae]
  - Pain in extremity [Unknown]

NARRATIVE: CASE EVENT DATE: 20150804
